FAERS Safety Report 16934459 (Version 1)
Quarter: 2019Q4

REPORT INFORMATION
  Report Type: Spontaneous
  Country: US (occurrence: US)
  Receive Date: 20191018
  Receipt Date: 20191018
  Transmission Date: 20200122
  Serious: Yes (Other)
  Sender: FDA-Public Use
  Company Number: US-BEH-2019108040

PATIENT
  Age: 49 Year
  Sex: Female

DRUGS (1)
  1. HUMAN IMMUNOGLOBULIN (INN) [Suspect]
     Active Substance: HUMAN IMMUNOGLOBULIN G
     Indication: PARANEOPLASTIC SYNDROME
     Dosage: 0.4 GRAM PER KILOGRAM
     Route: 042

REACTIONS (5)
  - Haemolysis [Unknown]
  - No adverse event [Unknown]
  - Product use in unapproved indication [Unknown]
  - Coombs direct test positive [Unknown]
  - Haemoglobin decreased [Unknown]
